FAERS Safety Report 4849854-5 (Version None)
Quarter: 2005Q4

REPORT INFORMATION
  Report Type: 
  Country: None (occurrence: None)
  Receive Date: 20051114
  Receipt Date: 20050119
  Transmission Date: 20060501
  Serious: Yes (Hospitalization)
  Sender: FDA-Public Use
  Company Number: 050124-0000564

PATIENT
  Age: 16 Month
  Sex: Male
  Weight: 11.8 kg

DRUGS (7)
  1. PENTOBARBITAL SODIUM [Suspect]
     Indication: SEDATION
     Dosage: 2.3 MG/KG;IVBOL
     Route: 040
  2. PENTOBARBITAL SODIUM [Suspect]
     Dosage: 3 MG/KG;QH;IVDRP
     Route: 041
  3. CEFUROXIME [Concomitant]
  4. L-CARNITINE [Concomitant]
  5. ALBUTEROL [Concomitant]
  6. TERBUTALINE SULFATE [Concomitant]
  7. METHYLPREDNISOLONE [Concomitant]

REACTIONS (1)
  - SEDATION [None]
